FAERS Safety Report 12210993 (Version 3)
Quarter: 2016Q2

REPORT INFORMATION
  Report Type: Spontaneous
  Country: BG (occurrence: BG)
  Receive Date: 20160325
  Receipt Date: 20160428
  Transmission Date: 20160815
  Serious: Yes (Hospitalization, Other)
  Sender: FDA-Public Use
  Company Number: BG-ASTRAZENECA-2016SE31036

PATIENT
  Age: 77 Year
  Sex: Female

DRUGS (11)
  1. ROZUCARD [Concomitant]
  2. BRILIQUE [Suspect]
     Active Substance: TICAGRELOR
     Indication: ACUTE CORONARY SYNDROME
     Route: 048
     Dates: start: 20151211, end: 201602
  3. ASPIRIN PROTECT [Concomitant]
     Active Substance: ASPIRIN
  4. DIAPREL MR [Concomitant]
     Active Substance: GLICLAZIDE
  5. DEGAN [Concomitant]
     Active Substance: METOCLOPRAMIDE HYDROCHLORIDE
     Dosage: 1 AMP
  6. FUROSEMIDE. [Concomitant]
     Active Substance: FUROSEMIDE
  7. CARVEDILOL. [Concomitant]
     Active Substance: CARVEDILOL
  8. ATORVASTATIN [Concomitant]
     Active Substance: ATORVASTATIN
  9. BRILIQUE [Suspect]
     Active Substance: TICAGRELOR
     Indication: ACUTE CORONARY SYNDROME
     Route: 048
  10. BETALOC ZOK [Concomitant]
     Active Substance: METOPROLOL SUCCINATE
  11. SPIRONOLACTONE. [Concomitant]
     Active Substance: SPIRONOLACTONE

REACTIONS (9)
  - Acute kidney injury [Unknown]
  - Oesophagitis [Unknown]
  - Gastrointestinal haemorrhage [Recovered/Resolved]
  - Hydronephrosis [Unknown]
  - Duodenal ulcer [Unknown]
  - Anaemia [Unknown]
  - Oesophageal ulcer haemorrhage [Unknown]
  - Hiatus hernia [Unknown]
  - Acute coronary syndrome [Unknown]

NARRATIVE: CASE EVENT DATE: 20160124
